FAERS Safety Report 5287597-7 (Version None)
Quarter: 2007Q1

REPORT INFORMATION
  Report Type: 
  Country: None (occurrence: None)
  Receive Date: 20070124
  Receipt Date: 20060110
  Transmission Date: 20070707
  Serious: Yes (Other)
  Sender: FDA-Public Use
  Company Number: WAES 0509USA01302

PATIENT
  Age: 48 Year
  Sex: Female
  Weight: 58.9676 kg

DRUGS (1)
  1. INVANZ [Suspect]
     Indication: JAW DISORDER
     Dosage: 1 GM/DAILY/IV
     Route: 042
     Dates: start: 20040824, end: 20041012

REACTIONS (3)
  - NAUSEA [None]
  - NEUTROPENIA [None]
  - VOMITING [None]
